FAERS Safety Report 8458154-6 (Version None)
Quarter: 2012Q2

REPORT INFORMATION
  Report Type: 
  Country: None (occurrence: None)
  Receive Date: 20120622
  Receipt Date: 20120618
  Transmission Date: 20120825
  Serious: No
  Sender: FDA-Public Use
  Company Number: US-B.I. PHARMACEUTICALS,INC./RIDGEFIELD-2012-BP-13946BP

PATIENT
  Sex: Male

DRUGS (1)
  1. SPIRIVA [Suspect]
     Indication: OEDEMA
     Dosage: 18 MG
     Route: 055
     Dates: start: 20120401

REACTIONS (2)
  - UPPER-AIRWAY COUGH SYNDROME [None]
  - INCREASED UPPER AIRWAY SECRETION [None]
